FAERS Safety Report 9111104 (Version 1)
Quarter: 2013Q1

REPORT INFORMATION
  Report Type: Spontaneous
  Country: US (occurrence: US)
  Receive Date: 20130219
  Receipt Date: 20130219
  Transmission Date: 20140127
  Serious: No
  Sender: FDA-Public Use
  Company Number: US-BRISTOL-MYERS SQUIBB COMPANY-16869174

PATIENT
  Age: 64 Year
  Sex: Female
  Weight: 113.38 kg

DRUGS (9)
  1. ORENCIA [Suspect]
     Indication: RHEUMATOID ARTHRITIS
     Dosage: LASTINF:23JUL12,LT#:2A7338,EX:DEC13,MAY14NDC#:0003218831,PRES#:1001661 FOR ORENCIASUBQ FROM 01AUG12
     Route: 042
     Dates: start: 20110711
  2. NEXIUM [Concomitant]
  3. LIPITOR [Concomitant]
  4. PREDNISONE [Concomitant]
  5. TRAMADOL [Concomitant]
  6. CALCIUM [Concomitant]
  7. LORTAB [Concomitant]
  8. VOLTAREN [Concomitant]
     Dosage: GEL
  9. METOPROLOL [Concomitant]

REACTIONS (1)
  - Tooth disorder [Unknown]
